FAERS Safety Report 4383205-8 (Version None)
Quarter: 2004Q2

REPORT INFORMATION
  Report Type: 
  Country: None (occurrence: None)
  Receive Date: 20040618
  Receipt Date: 20040528
  Transmission Date: 20050107
  Serious: Yes (Death)
  Sender: FDA-Public Use
  Company Number: USA040568790

PATIENT
  Age: 28 Year
  Sex: Female

DRUGS (1)
  1. HUMULIN 70/30 [Suspect]
     Indication: DIABETES MELLITUS
     Dates: start: 19940101

REACTIONS (4)
  - CARDIAC FAILURE CONGESTIVE [None]
  - DIALYSIS [None]
  - MEDICATION ERROR [None]
  - OEDEMA PERIPHERAL [None]
